FAERS Safety Report 9234773 (Version 1)
Quarter: 2013Q2

REPORT INFORMATION
  Report Type: Spontaneous
  Country: DE (occurrence: DE)
  Receive Date: 20130416
  Receipt Date: 20130416
  Transmission Date: 20140414
  Serious: Yes (Death)
  Sender: FDA-Public Use
  Company Number: DE-BAXTER-2013BAX013089

PATIENT
  Sex: Male

DRUGS (2)
  1. EXTRANEAL [Suspect]
     Indication: PERITONEAL DIALYSIS
     Route: 033
  2. CALCIUM CHLORIDE\DEXTROSE\MAGNESIUM CHLORIDE\SODIUM CHLORIDE SOLUTION [Suspect]
     Indication: PERITONEAL DIALYSIS
     Route: 033

REACTIONS (1)
  - Death [Fatal]
